FAERS Safety Report 17385524 (Version 1)
Quarter: 2020Q1

REPORT INFORMATION
  Report Type: Spontaneous
  Country: US (occurrence: US)
  Receive Date: 20200206
  Receipt Date: 20200206
  Transmission Date: 20200409
  Serious: No
  Sender: FDA-Public Use
  Company Number: US-ABBVIE-19K-163-2917467-00

PATIENT
  Age: 52 Year
  Sex: Male
  Weight: 99.88 kg

DRUGS (4)
  1. MESALAMINE. [Suspect]
     Active Substance: MESALAMINE
     Indication: COLITIS ULCERATIVE
     Route: 048
     Dates: start: 2018, end: 201903
  2. VALTREX [Concomitant]
     Active Substance: VALACYCLOVIR HYDROCHLORIDE
     Indication: ORAL HERPES
  3. HUMIRA [Suspect]
     Active Substance: ADALIMUMAB
     Indication: COLITIS ULCERATIVE
     Route: 058
     Dates: start: 201811
  4. MESALAMINE. [Suspect]
     Active Substance: MESALAMINE
     Route: 048
     Dates: start: 2019

REACTIONS (4)
  - Device issue [Unknown]
  - Injection site discomfort [Not Recovered/Not Resolved]
  - Injection site erythema [Not Recovered/Not Resolved]
  - Gastrointestinal pain [Recovering/Resolving]

NARRATIVE: CASE EVENT DATE: 2018
